FAERS Safety Report 12965264 (Version 1)
Quarter: 2016Q4

REPORT INFORMATION
  Report Type: Spontaneous
  Country: US (occurrence: US)
  Receive Date: 20161122
  Receipt Date: 20161122
  Transmission Date: 20170207
  Serious: Yes (Hospitalization)
  Sender: FDA-Public Use
  Company Number: US-PFIZER INC-3004081

PATIENT
  Age: 19 Year
  Sex: Male
  Weight: 60.7 kg

DRUGS (6)
  1. CYCLOPHOSPHAMIDE. [Suspect]
     Active Substance: CYCLOPHOSPHAMIDE
     Indication: ANAPLASTIC LARGE CELL LYMPHOMA T- AND NULL-CELL TYPES
     Dosage: 200 MG/M2, OVER 15 TO 30MINUTES ON DAYS 1 TO 5 FREQ: CYCLICAL
     Route: 042
     Dates: start: 20140705, end: 20140709
  2. DEXAMETHASONE. [Suspect]
     Active Substance: DEXAMETHASONE
     Indication: ANAPLASTIC LARGE CELL LYMPHOMA T- AND NULL-CELL TYPES
     Dosage: 5 MG/M2, CYCLICAL, ON DAYS 1TO 5 FREQ: 2 DAY;INTERVAL: 1
     Route: 048
     Dates: start: 20140705, end: 20140709
  3. CRIZOTINIB [Concomitant]
     Active Substance: CRIZOTINIB
     Indication: ANAPLASTIC LARGE CELL LYMPHOMA T- AND NULL-CELL TYPES
     Dosage: 165 MG/M2, CYCLICAL, ON DAYS 1 TO 21, FREQ: 2 DAY; INTERVAL : 1
     Route: 048
     Dates: start: 20140705, end: 20140715
  4. METHOTREXATE SODIUM. [Suspect]
     Active Substance: METHOTREXATE SODIUM
     Indication: ANAPLASTIC LARGE CELL LYMPHOMA T- AND NULL-CELL TYPES
     Dosage: 3000 MG/M2, OVER 3 HOURS ON DAY1, FREQ: CYCLICAL
     Route: 042
     Dates: start: 20140705, end: 20140705
  5. CALCIUM FOLINATE [Suspect]
     Active Substance: LEUCOVORIN CALCIUM
     Indication: ANAPLASTIC LARGE CELL LYMPHOMA T- AND NULL-CELL TYPES
     Dosage: 15 MG/M2/DOSE, EVERY 6 HOURS UNTIL MTX LEVEL IS LESS THAT 0.1UM/L FREQ: CYCLICAL
     Route: 042
     Dates: start: 20140504, end: 20140826
  6. DOXORUBICIN HYDROCHLORIDE. [Suspect]
     Active Substance: DOXORUBICIN HYDROCHLORIDE
     Indication: ANAPLASTIC LARGE CELL LYMPHOMA T- AND NULL-CELL TYPES
     Dosage: 25 MG/M2, OVER 1TO 15 MINUTES ON DAYS 4 AND 5, FREQ: CYCLICAL
     Route: 042
     Dates: start: 20140705, end: 20140709

REACTIONS (2)
  - Stomatitis [Recovered/Resolved]
  - Tracheal inflammation [Recovered/Resolved]

NARRATIVE: CASE EVENT DATE: 20140715
